FAERS Safety Report 13534187 (Version 2)
Quarter: 2017Q2

REPORT INFORMATION
  Report Type: Spontaneous
  Country: IL (occurrence: IL)
  Receive Date: 20170510
  Receipt Date: 20170616
  Transmission Date: 20170830
  Serious: Yes (Other)
  Sender: FDA-Public Use
  Company Number: IL-009507513-1705ISR004162

PATIENT
  Age: 38 Year
  Sex: Male
  Weight: 89 kg

DRUGS (1)
  1. ESMERON [Suspect]
     Active Substance: ROCURONIUM BROMIDE
     Dosage: 100 MG, UNK
     Dates: start: 20170503

REACTIONS (4)
  - Hypoventilation [Unknown]
  - Oxygen saturation decreased [Unknown]
  - Bronchospasm [Unknown]
  - Hypersensitivity [Unknown]

NARRATIVE: CASE EVENT DATE: 20170503
